FAERS Safety Report 6102152-4 (Version None)
Quarter: 2009Q1

REPORT INFORMATION
  Report Type: 
  Country: None (occurrence: None)
  Receive Date: 20090304
  Receipt Date: 20090227
  Transmission Date: 20090719
  Serious: Yes (Life-Threatening)
  Sender: FDA-Public Use
  Company Number: US-MERCK-0902USA00412

PATIENT
  Age: 32 Year
  Sex: Female
  Weight: 72 kg

DRUGS (6)
  1. IVEMEND [Suspect]
     Indication: PROPHYLAXIS OF NAUSEA AND VOMITING
     Route: 042
     Dates: start: 20090202, end: 20090202
  2. ETOPOSIDE [Concomitant]
     Indication: CHEMOTHERAPY
     Route: 042
     Dates: start: 20090202, end: 20090202
  3. CISPLATIN [Concomitant]
     Indication: CHEMOTHERAPY
     Route: 042
     Dates: start: 20090202, end: 20090202
  4. POTASSIUM (UNSPECIFIED) [Concomitant]
     Indication: ELECTROLYTE IMBALANCE
     Route: 042
     Dates: start: 20090202, end: 20090202
  5. MAGNESIUM (UNSPECIFIED) [Concomitant]
     Indication: ELECTROLYTE IMBALANCE
     Route: 042
     Dates: start: 20090202, end: 20090202
  6. DEXAMETHASONE [Concomitant]
     Route: 042
     Dates: start: 20090202, end: 20090202

REACTIONS (5)
  - ANAPHYLACTIC REACTION [None]
  - FLUSHING [None]
  - HYPERSENSITIVITY [None]
  - RESPIRATORY DISTRESS [None]
  - THROAT TIGHTNESS [None]
